FAERS Safety Report 10205485 (Version 1)
Quarter: 2014Q2

REPORT INFORMATION
  Report Type: Spontaneous
  Country: BR (occurrence: BR)
  Receive Date: 20140529
  Receipt Date: 20140529
  Transmission Date: 20141212
  Serious: Yes (Hospitalization, Other)
  Sender: FDA-Public Use
  Company Number: BR-009507513-1405BRA013178

PATIENT
  Sex: Female
  Weight: 58 kg

DRUGS (3)
  1. MERCILON [Suspect]
     Indication: CONTRACEPTION
     Dosage: 1 DF, QD
     Route: 048
     Dates: start: 2002, end: 2012
  2. MERCILON [Suspect]
     Dosage: 1 DF, QD
     Route: 048
     Dates: start: 201308, end: 201403
  3. MERCILON [Suspect]
     Dosage: 1 DF, QD
     Route: 048
     Dates: start: 201404

REACTIONS (7)
  - Amniotic fluid volume decreased [Recovered/Resolved]
  - Caesarean section [Recovered/Resolved]
  - Cholelithotomy [Recovered/Resolved]
  - Cholelithiasis [Recovered/Resolved]
  - Premature delivery [Recovered/Resolved]
  - Nausea [Not Recovered/Not Resolved]
  - Maternal exposure before pregnancy [Unknown]
